FAERS Safety Report 4842975-2 (Version None)
Quarter: 2005Q4

REPORT INFORMATION
  Report Type: 
  Country: None (occurrence: None)
  Receive Date: 20051130
  Receipt Date: 20051121
  Transmission Date: 20060501
  Serious: Yes (Congenital Anomaly, Other)
  Sender: FDA-Public Use
  Company Number: 2005S1000333

PATIENT
  Sex: Female

DRUGS (1)
  1. SORIATANE [Suspect]
     Dosage: 25 MG; QS; VAG
     Route: 067
     Dates: start: 20000101

REACTIONS (5)
  - ANTEPARTUM HAEMORRHAGE [None]
  - CAESAREAN SECTION [None]
  - PREGNANCY OF PARTNER [None]
  - TRANSMISSION OF DRUG VIA SEMEN [None]
  - VAGINAL HAEMORRHAGE [None]
